FAERS Safety Report 19759738 (Version 3)
Quarter: 2025Q1

REPORT INFORMATION
  Report Type: Spontaneous
  Country: US (occurrence: US)
  Receive Date: 20210830
  Receipt Date: 20250130
  Transmission Date: 20250409
  Serious: Yes (Hospitalization)
  Sender: SANOFI AVENTIS
  Company Number: US-SA-SAC20210826001311

PATIENT
  Age: 25 Year
  Sex: Female

DRUGS (40)
  1. DUPIXENT [Suspect]
     Active Substance: DUPILUMAB
     Indication: Asthma
     Dosage: 300 MG, QOW
     Route: 058
     Dates: start: 20200626
  2. KETOROLAC TROMETHAMINE [Concomitant]
     Active Substance: KETOROLAC TROMETHAMINE
  3. ONDANSETRON HYDROCHLORIDE [Concomitant]
     Active Substance: ONDANSETRON HYDROCHLORIDE
  4. TRULANCE [Concomitant]
     Active Substance: PLECANATIDE
  5. RABEPRAZOLE SODIUM [Concomitant]
     Active Substance: RABEPRAZOLE SODIUM
  6. BACLOFEN [Concomitant]
     Active Substance: BACLOFEN
  7. CYPROHEPTADINE HYDROCHLORIDE [Concomitant]
     Active Substance: CYPROHEPTADINE HYDROCHLORIDE
  8. NIFEDIPINE [Concomitant]
     Active Substance: NIFEDIPINE
  9. FLUTICASONE PROPIONATE [Concomitant]
     Active Substance: FLUTICASONE PROPIONATE
  10. IPRATROPIUM BROMIDE [Concomitant]
     Active Substance: IPRATROPIUM BROMIDE
  11. ASMANEX [Concomitant]
     Active Substance: MOMETASONE FUROATE
  12. LEVALBUTEROL TARTRATE [Concomitant]
     Active Substance: LEVALBUTEROL TARTRATE
  13. LEVALBUTEROL [Concomitant]
     Active Substance: LEVALBUTEROL
  14. ZILEUTON [Concomitant]
     Active Substance: ZILEUTON
  15. THIOTHIXENE [Concomitant]
     Active Substance: THIOTHIXENE
  16. TRAZODONE HCL [Concomitant]
     Active Substance: TRAZODONE HYDROCHLORIDE
  17. VENLAFAXINE HCL [Concomitant]
     Active Substance: VENLAFAXINE HYDROCHLORIDE
  18. TRELEGY ELLIPTA [Concomitant]
     Active Substance: FLUTICASONE FUROATE\UMECLIDINIUM BROMIDE\VILANTEROL TRIFENATATE
  19. AMITRIPTYLINE HYDROCHLORIDE [Concomitant]
     Active Substance: AMITRIPTYLINE HYDROCHLORIDE
  20. BENADRYL [Concomitant]
     Active Substance: DIPHENHYDRAMINE HYDROCHLORIDE
  21. VITAMIN B12 [Concomitant]
     Active Substance: CYANOCOBALAMIN
  22. PEPCID [Concomitant]
     Active Substance: FAMOTIDINE
  23. ZYRTEC [Concomitant]
     Active Substance: CETIRIZINE HYDROCHLORIDE
  24. ALLEGRA ALLERGY [Concomitant]
     Active Substance: FEXOFENADINE HYDROCHLORIDE
  25. BENZONATATE [Concomitant]
     Active Substance: BENZONATATE
  26. LIDOCAINE [Concomitant]
     Active Substance: LIDOCAINE
  27. HYDROMORPHONE [Concomitant]
     Active Substance: HYDROMORPHONE
  28. HYDROCORTISONE ACETATE [Concomitant]
     Active Substance: HYDROCORTISONE ACETATE
  29. BREZTRI [Concomitant]
     Active Substance: BUDESONIDE\FORMOTEROL\GLYCOPYRROLATE
  30. VITAMIN B COMPLEX [Concomitant]
     Active Substance: CYANOCOBALAMIN\DEXPANTHENOL\NIACINAMIDE\PYRIDOXINE HYDROCHLORIDE\RIBOFLAVIN 5^-PHOSPHATE SODIUM\THIA
  31. MAGNESIUM GLYCINATE [Concomitant]
     Active Substance: MAGNESIUM GLYCINATE
  32. TEGRETOL [Concomitant]
     Active Substance: CARBAMAZEPINE
  33. CROMOLYN SODIUM [Concomitant]
     Active Substance: CROMOLYN SODIUM
  34. PROMETHAZINE HYDROCHLORIDE [Concomitant]
     Active Substance: PROMETHAZINE HYDROCHLORIDE
  35. CABERGOLINE [Concomitant]
     Active Substance: CABERGOLINE
  36. VITAMIN D2 [Concomitant]
     Active Substance: ERGOCALCIFEROL
  37. VITAMINS [Concomitant]
     Active Substance: VITAMINS
  38. METOPROLOL SUCCINATE [Concomitant]
     Active Substance: METOPROLOL SUCCINATE
  39. EPIPEN [Concomitant]
     Active Substance: EPINEPHRINE
  40. LUBIPROSTONE [Concomitant]
     Active Substance: LUBIPROSTONE

REACTIONS (4)
  - Hospitalisation [Unknown]
  - Impaired quality of life [Not Recovered/Not Resolved]
  - Asthma [Not Recovered/Not Resolved]
  - Drug effect less than expected [Unknown]

NARRATIVE: CASE EVENT DATE: 20210730
